FAERS Safety Report 4434350-X (Version None)
Quarter: 2004Q3

REPORT INFORMATION
  Report Type: 
  Country: None (occurrence: None)
  Receive Date: 20040826
  Receipt Date: 20040817
  Transmission Date: 20050211
  Serious: Yes (Other)
  Sender: FDA-Public Use
  Company Number: US-MERCK-0408USA01458

PATIENT
  Age: 86 Year
  Sex: Female

DRUGS (2)
  1. LOTREL [Concomitant]
     Route: 065
  2. VIOXX [Suspect]
     Indication: OSTEOARTHRITIS
     Route: 048
     Dates: end: 20010101

REACTIONS (1)
  - BLINDNESS UNILATERAL [None]
